FAERS Safety Report 7709601-6 (Version None)
Quarter: 2011Q3

REPORT INFORMATION
  Report Type: 
  Country: None (occurrence: None)
  Receive Date: 20110825
  Receipt Date: 20110815
  Transmission Date: 20111222
  Serious: Yes (Hospitalization)
  Sender: FDA-Public Use
  Company Number: US-GLAXOSMITHKLINE-A0834834A

PATIENT
  Age: 39 Year
  Sex: Female

DRUGS (1)
  1. AVANDIA [Suspect]
     Indication: TYPE 2 DIABETES MELLITUS
     Dosage: 8MG TWICE PER DAY
     Route: 048
     Dates: start: 19990901, end: 20030301

REACTIONS (7)
  - HEART RATE INCREASED [None]
  - HYPERTENSION [None]
  - MIGRAINE [None]
  - CEREBROVASCULAR ACCIDENT [None]
  - OEDEMA [None]
  - ILL-DEFINED DISORDER [None]
  - HEART RATE IRREGULAR [None]
